FAERS Safety Report 14034828 (Version 2)
Quarter: 2017Q4

REPORT INFORMATION
  Report Type: Spontaneous
  Country: US (occurrence: US)
  Receive Date: 20171003
  Receipt Date: 20171114
  Transmission Date: 20180321
  Serious: No
  Sender: FDA-Public Use
  Company Number: US-GLAXOSMITHKLINE-US2017150442

PATIENT
  Age: 34 Year
  Sex: Female

DRUGS (2)
  1. ABREVA [Suspect]
     Active Substance: DOCOSANOL
     Indication: ORAL HERPES
     Dosage: UNK
     Dates: start: 20170921, end: 20170923
  2. ABREVA [Suspect]
     Active Substance: DOCOSANOL
     Dosage: UNK

REACTIONS (3)
  - Inappropriate schedule of drug administration [Unknown]
  - Product quality issue [Unknown]
  - Incorrect drug administration duration [Unknown]
